FAERS Safety Report 7089387-1 (Version None)
Quarter: 2010Q4

REPORT INFORMATION
  Report Type: 
  Country: None (occurrence: None)
  Receive Date: 20101108
  Receipt Date: 20100914
  Transmission Date: 20110411
  Serious: No
  Sender: FDA-Public Use
  Company Number: US-BAYER-201021533BCC

PATIENT
  Age: 21 Year
  Sex: Female
  Weight: 77 kg

DRUGS (1)
  1. ALEVE-D SINUS + COLD [Suspect]
     Indication: PRODUCT USED FOR UNKNOWN INDICATION
     Dosage: TOTAL DAILY DOSE: 2 DF
     Route: 048
     Dates: start: 20100913

REACTIONS (1)
  - NO ADVERSE EVENT [None]
